FAERS Safety Report 21674971 (Version 1)
Quarter: 2022Q4

REPORT INFORMATION
  Report Type: Spontaneous
  Country: TN (occurrence: TN)
  Receive Date: 20221202
  Receipt Date: 20221202
  Transmission Date: 20230112
  Serious: Yes (Other)
  Sender: FDA-Public Use
  Company Number: TN-BAYER-2022A159891

PATIENT
  Age: 39 Year
  Sex: Female

DRUGS (1)
  1. INTERFERON BETA-1B [Suspect]
     Active Substance: INTERFERON BETA-1B
     Indication: Multiple sclerosis

REACTIONS (2)
  - Dermatitis exfoliative generalised [None]
  - Psoriasis [None]
